FAERS Safety Report 12231398 (Version 3)
Quarter: 2016Q2

REPORT INFORMATION
  Report Type: Spontaneous
  Country: US (occurrence: US)
  Receive Date: 20160401
  Receipt Date: 20160425
  Transmission Date: 20160815
  Serious: Yes (Hospitalization)
  Sender: FDA-Public Use
  Company Number: US-009507513-1603USA013375

PATIENT
  Age: 68 Year
  Sex: Female

DRUGS (4)
  1. METFORMIN [Concomitant]
     Active Substance: METFORMIN HYDROCHLORIDE
  2. DECADRON [Suspect]
     Active Substance: DEXAMETHASONE
     Indication: EAR PAIN
  3. DECADRON [Suspect]
     Active Substance: DEXAMETHASONE
     Indication: FACIAL PAIN
     Dosage: 10 MG, ONCE
     Dates: start: 20141117
  4. INSULIN [Concomitant]
     Active Substance: INSULIN NOS

REACTIONS (11)
  - Tongue discolouration [Not Recovered/Not Resolved]
  - Tongue disorder [Not Recovered/Not Resolved]
  - Pneumonia [Not Recovered/Not Resolved]
  - Weight decreased [Not Recovered/Not Resolved]
  - Productive cough [Not Recovered/Not Resolved]
  - Cough [Not Recovered/Not Resolved]
  - Swollen tongue [Not Recovered/Not Resolved]
  - Dyspnoea [Not Recovered/Not Resolved]
  - Alopecia [Not Recovered/Not Resolved]
  - Decreased appetite [Not Recovered/Not Resolved]
  - Dermatitis diaper [Not Recovered/Not Resolved]

NARRATIVE: CASE EVENT DATE: 201411
